FAERS Safety Report 4500944-6 (Version None)
Quarter: 2004Q4

REPORT INFORMATION
  Report Type: 
  Country: None (occurrence: None)
  Receive Date: 20041110
  Receipt Date: 20041026
  Transmission Date: 20050328
  Serious: Yes (Hospitalization)
  Sender: FDA-Public Use
  Company Number: 2004RL000122

PATIENT
  Age: 68 Year
  Sex: Female

DRUGS (6)
  1. RYTHMOL [Suspect]
     Dosage: SEE IMAGE
     Route: 048
     Dates: start: 19990101, end: 19990607
  2. RYTHMOL [Suspect]
     Dosage: SEE IMAGE
     Route: 048
     Dates: start: 19990608, end: 20041007
  3. RYTHMOL [Suspect]
     Dosage: SEE IMAGE
     Route: 048
     Dates: start: 20041008
  4. CARDIZEM [Concomitant]
  5. SYNTHROID [Concomitant]
  6. GLUCOTROL [Concomitant]

REACTIONS (2)
  - ATRIAL FIBRILLATION [None]
  - THYROXINE ABNORMAL [None]
